FAERS Safety Report 13771062 (Version 1)
Quarter: 2017Q3

REPORT INFORMATION
  Report Type: Spontaneous
  Country: US (occurrence: US)
  Receive Date: 20170720
  Receipt Date: 20170720
  Transmission Date: 20171127
  Serious: No
  Sender: FDA-Public Use
  Company Number: None

PATIENT
  Age: 71 Year
  Sex: Female
  Weight: 46.35 kg

DRUGS (6)
  1. TOPROL XL [Concomitant]
     Active Substance: METOPROLOL SUCCINATE
  2. LASIX [Concomitant]
     Active Substance: FUROSEMIDE
  3. SYNTHROID [Concomitant]
     Active Substance: LEVOTHYROXINE SODIUM
  4. VITAMIN D [Concomitant]
     Active Substance: CHOLECALCIFEROL
  5. DIAZAPAM [Suspect]
     Active Substance: DIAZEPAM
     Indication: INSOMNIA
     Dosage: OTHER STRENGTH:MG;QUANTITY:1 TABLET(S);?
     Route: 048
  6. POTASSIUM CHLORIDE. [Concomitant]
     Active Substance: POTASSIUM CHLORIDE

REACTIONS (18)
  - Irritability [None]
  - Memory impairment [None]
  - Nausea [None]
  - Constipation [None]
  - Fatigue [None]
  - Gastrooesophageal reflux disease [None]
  - Loss of personal independence in daily activities [None]
  - Fear [None]
  - Withdrawal syndrome [None]
  - Palpitations [None]
  - Tremor [None]
  - Decreased appetite [None]
  - Insomnia [None]
  - Confusional state [None]
  - Dizziness [None]
  - Anxiety [None]
  - Depression [None]
  - Impaired driving ability [None]

NARRATIVE: CASE EVENT DATE: 20170313
